FAERS Safety Report 7267603-0 (Version None)
Quarter: 2011Q1

REPORT INFORMATION
  Report Type: 
  Country: None (occurrence: None)
  Receive Date: 20110201
  Receipt Date: 20110121
  Transmission Date: 20110831
  Serious: Yes (Death)
  Sender: FDA-Public Use
  Company Number: JP-AMGEN-JPNCT2011004636

PATIENT
  Age: 78 Year
  Sex: Male
  Weight: 64 kg

DRUGS (6)
  1. PANITUMUMAB [Suspect]
     Indication: COLORECTAL CANCER
     Dosage: 400 MG, Q2WK
     Route: 041
     Dates: start: 20101105
  2. GASMOTIN [Concomitant]
     Route: 048
  3. MAGMITT [Concomitant]
     Route: 048
  4. PRIMPERAN TAB [Concomitant]
     Route: 048
  5. CORTICOSTEROIDS [Concomitant]
     Indication: PROPHYLAXIS
     Route: 065
  6. ANTIHISTAMINES [Concomitant]
     Indication: PROPHYLAXIS
     Route: 065

REACTIONS (4)
  - PARONYCHIA [None]
  - MALIGNANT ASCITES [None]
  - COLORECTAL CANCER [None]
  - DERMATITIS ACNEIFORM [None]
